FAERS Safety Report 5313810-3 (Version None)
Quarter: 2007Q2

REPORT INFORMATION
  Report Type: 
  Country: None (occurrence: None)
  Receive Date: 20070501
  Receipt Date: 20070419
  Transmission Date: 20071010
  Serious: Yes (Hospitalization)
  Sender: FDA-Public Use
  Company Number: DE-ROCHE-493802

PATIENT
  Age: 70 Year
  Sex: Male

DRUGS (10)
  1. TORSEMIDE [Suspect]
     Indication: DRUG USE FOR UNKNOWN INDICATION
     Route: 065
     Dates: start: 20060501
  2. CARVEDILOL [Suspect]
     Route: 065
     Dates: start: 20060501
  3. SPIRONOLACTONE [Suspect]
     Indication: DRUG USE FOR UNKNOWN INDICATION
     Route: 065
     Dates: start: 20061026
  4. BIVALIRUDIN [Suspect]
     Indication: MYOCARDIAL INFARCTION
     Dosage: INTRAVENOUS BOLUS
     Route: 042
     Dates: start: 20060515, end: 20060515
  5. BIVALIRUDIN [Suspect]
     Dosage: RATE OF 157.5MG/HR
     Route: 042
     Dates: start: 20060515, end: 20060517
  6. RAMIPRIL [Suspect]
     Indication: DRUG USE FOR UNKNOWN INDICATION
     Route: 065
     Dates: start: 20061026
  7. SIMVASTATIN [Concomitant]
     Dates: start: 20060501
  8. INSULIN [Concomitant]
     Dates: start: 20060515
  9. ASPIRIN [Concomitant]
     Dates: start: 20060515
  10. CLOPIDOGREL [Concomitant]
     Dates: start: 20060515

REACTIONS (2)
  - CARDIOGENIC SHOCK [None]
  - HYPOTONIA [None]
